FAERS Safety Report 21594055 (Version 1)
Quarter: 2022Q4

REPORT INFORMATION
  Report Type: Spontaneous
  Country: US (occurrence: US)
  Receive Date: 20221115
  Receipt Date: 20221115
  Transmission Date: 20230112
  Serious: Yes (Other)
  Sender: FDA-Public Use
  Company Number: US-NOVOPROD-978110

PATIENT
  Age: 83 Year
  Sex: Female

DRUGS (1)
  1. LEVEMIR [Suspect]
     Active Substance: INSULIN DETEMIR
     Indication: Product used for unknown indication
     Dosage: UNK
     Route: 058
     Dates: start: 2006

REACTIONS (4)
  - Knee arthroplasty [Unknown]
  - Nail operation [Unknown]
  - Hysterectomy [Unknown]
  - Cholecystectomy [Unknown]
